FAERS Safety Report 10231193 (Version 2)
Quarter: 2014Q2

REPORT INFORMATION
  Report Type: Report from Study
  Country: US (occurrence: US)
  Receive Date: 20140611
  Receipt Date: 20140611
  Transmission Date: 20141212
  Serious: Yes (Hospitalization, Other)
  Sender: FDA-Public Use
  Company Number: US-009507513-1105USA03514

PATIENT
  Age: 49 Year
  Sex: Female
  Weight: 91.4 kg

DRUGS (16)
  1. HEXADROL TABLETS [Suspect]
     Dosage: 40MG, DAY 1-4OF EACH CYCLE
     Dates: start: 20110224
  2. INOTUZUMAB OZOGAMICIN [Suspect]
     Indication: NON-HODGKIN^S LYMPHOMA
     Dosage: 1.6 MG (AT 0.796 MG/M2) EVERY 21 DAYS X 6 CYCLES
     Route: 042
     Dates: start: 20110224
  3. INOTUZUMAB OZOGAMICIN [Suspect]
     Indication: LYMPHOMA
  4. RITUXIMAB [Suspect]
     Indication: NON-HODGKIN^S LYMPHOMA
     Dosage: 750 MG, EVERY 21 DAYS X 6 CYCLES
     Route: 042
     Dates: start: 20110224
  5. RITUXIMAB [Suspect]
     Indication: LYMPHOMA
  6. CISPLATIN [Suspect]
     Indication: NON-HODGKIN^S LYMPHOMA
     Dosage: 75 MG, EVERY 21 DAYS X 6 CYCLES
     Route: 042
     Dates: start: 20110224
  7. CISPLATIN [Suspect]
     Indication: LYMPHOMA
  8. GEMCITABINE [Suspect]
     Indication: NON-HODGKIN^S LYMPHOMA
     Dosage: 1000 MG, EVERY 21 DAYS X 6 CYCLES
     Route: 042
     Dates: start: 20110224
  9. GEMCITABINE [Suspect]
     Indication: LYMPHOMA
  10. ESTROGENS, CONJUGATED [Concomitant]
     Indication: HORMONE REPLACEMENT THERAPY
     Dosage: 0.1 MG AT UNKNOWN FRECUENCY
     Dates: start: 1996, end: 20110425
  11. ALBURETOL [Concomitant]
     Indication: CHRONIC OBSTRUCTIVE PULMONARY DISEASE
     Dates: start: 20100426
  12. OMEPRAZOLE [Concomitant]
     Route: 048
     Dates: start: 20100318
  13. ZYRTEC [Concomitant]
     Indication: HYPERSENSITIVITY
     Dosage: 10 MG, PRN
     Dates: start: 20081112
  14. ONDANSETRON HYDROCHLORIDE [Concomitant]
     Dates: start: 20110325
  15. NEULASTA [Concomitant]
     Indication: NEUTROPENIA
     Dates: start: 20110321
  16. BACTRIM DS [Concomitant]
     Indication: URINARY TRACT INFECTION
     Dates: start: 20110406, end: 20110415

REACTIONS (6)
  - Thrombophlebitis [Recovered/Resolved]
  - Pancytopenia [Unknown]
  - Urinary tract infection [Unknown]
  - Chronic obstructive pulmonary disease [Unknown]
  - Thrombocytopenia [Unknown]
  - Anaemia [Unknown]
